FAERS Safety Report 10757654 (Version 4)
Quarter: 2015Q3

REPORT INFORMATION
  Report Type: Report from Study
  Country: GB (occurrence: GB)
  Receive Date: 20150203
  Receipt Date: 20150730
  Transmission Date: 20151125
  Serious: Yes (Death, Disabling, Other)
  Sender: FDA-Public Use
  Company Number: GB-CELGENE-GBR-2015015044

PATIENT
  Age: 58 Year
  Sex: Female

DRUGS (4)
  1. REVLIMID [Suspect]
     Active Substance: LENALIDOMIDE
     Indication: PLASMA CELL MYELOMA
     Route: 048
     Dates: start: 20121210
  2. THALIDOMIDE [Suspect]
     Active Substance: THALIDOMIDE
     Indication: PLASMA CELL MYELOMA
     Route: 048
     Dates: start: 20101011
  3. DEXAMETHASONE. [Suspect]
     Active Substance: DEXAMETHASONE
     Indication: PLASMA CELL MYELOMA
     Route: 065
     Dates: start: 20101011
  4. CYCLOPHOSPHAMIDE. [Suspect]
     Active Substance: CYCLOPHOSPHAMIDE
     Indication: PLASMA CELL MYELOMA
     Route: 065
     Dates: start: 20101011

REACTIONS (1)
  - Myelodysplastic syndrome [Fatal]

NARRATIVE: CASE EVENT DATE: 20140606
